FAERS Safety Report 11091069 (Version 1)
Quarter: 2015Q2

REPORT INFORMATION
  Report Type: Spontaneous
  Country: US (occurrence: US)
  Receive Date: 20150505
  Receipt Date: 20150505
  Transmission Date: 20150821
  Serious: No
  Sender: FDA-Public Use
  Company Number: US-PFIZER INC-2015140917

PATIENT
  Sex: Male

DRUGS (2)
  1. TIKOSYN [Suspect]
     Active Substance: DOFETILIDE
     Dosage: 250 ?G, 2X/DAY
  2. TIKOSYN [Suspect]
     Active Substance: DOFETILIDE
     Indication: SINUS RHYTHM
     Dosage: 500 ?G, 2X/DAY

REACTIONS (1)
  - Drug ineffective [Unknown]
